FAERS Safety Report 21844891 (Version 1)
Quarter: 2023Q1

REPORT INFORMATION
  Report Type: Spontaneous
  Country: US (occurrence: US)
  Receive Date: 20230110
  Receipt Date: 20230110
  Transmission Date: 20230417
  Serious: Yes (Other)
  Sender: FDA-Public Use
  Company Number: US-AMERICAN REGENT INC-2023000018

PATIENT
  Age: 46 Year
  Sex: Female

DRUGS (1)
  1. FERRIC CARBOXYMALTOSE [Suspect]
     Active Substance: FERRIC CARBOXYMALTOSE
     Indication: Product used for unknown indication
     Dosage: 750 MILLIGRAM, 4 WEEKS APART
     Route: 042
     Dates: start: 20220510, end: 20220510

REACTIONS (7)
  - Malaise [Unknown]
  - Loss of consciousness [Unknown]
  - Feeling abnormal [Unknown]
  - Asthenia [Unknown]
  - Dizziness [Unknown]
  - Abdominal pain upper [Unknown]
  - Hypotension [Unknown]

NARRATIVE: CASE EVENT DATE: 20220510
